FAERS Safety Report 16112971 (Version 1)
Quarter: 2019Q1

REPORT INFORMATION
  Report Type: Spontaneous
  Country: GB (occurrence: GB)
  Receive Date: 20190325
  Receipt Date: 20190325
  Transmission Date: 20190418
  Serious: Yes (Other)
  Sender: FDA-Public Use
  Company Number: PHHY2019GB046042

PATIENT
  Age: 45 Year
  Sex: Male

DRUGS (3)
  1. GABAPENTIN. [Suspect]
     Active Substance: GABAPENTIN
     Indication: DESMOID TUMOUR
     Route: 065
  2. TRAMADOL. [Suspect]
     Active Substance: TRAMADOL
     Indication: DESMOID TUMOUR
  3. TRAMADOL. [Suspect]
     Active Substance: TRAMADOL
     Indication: FIBROMATOSIS
     Dosage: UNK
     Route: 065

REACTIONS (7)
  - Gait inability [Unknown]
  - Headache [Unknown]
  - Product use in unapproved indication [Unknown]
  - Drug dependence [Unknown]
  - Drug withdrawal syndrome [Unknown]
  - Feeling abnormal [Unknown]
  - Pain [Unknown]
